FAERS Safety Report 26169780 (Version 1)
Quarter: 2025Q4

REPORT INFORMATION
  Report Type: Spontaneous
  Country: EU (occurrence: EU)
  Receive Date: 20251217
  Receipt Date: 20251217
  Transmission Date: 20260118
  Serious: Yes (Hospitalization, Other)
  Sender: MYLAN
  Company Number: EU-PMCS-2025001326

PATIENT
  Age: 71 Year
  Sex: Male

DRUGS (64)
  1. CLOZAPINE [Interacting]
     Active Substance: CLOZAPINE
     Indication: Schizophrenia
     Dosage: 100 MILLIGRAM, Q8H (0.3 DAY)
     Dates: start: 20240101
  2. CLOZAPINE [Interacting]
     Active Substance: CLOZAPINE
     Dosage: 100 MILLIGRAM, Q8H (0.3 DAY)
     Dates: start: 20240101
  3. CLOZAPINE [Interacting]
     Active Substance: CLOZAPINE
     Dosage: 100 MILLIGRAM, Q8H (0.3 DAY)
     Route: 065
     Dates: start: 20240101
  4. CLOZAPINE [Interacting]
     Active Substance: CLOZAPINE
     Dosage: 100 MILLIGRAM, Q8H (0.3 DAY)
     Route: 065
     Dates: start: 20240101
  5. CLOZAPINE [Interacting]
     Active Substance: CLOZAPINE
     Dosage: 500 MILLIGRAM, BID
     Route: 048
  6. CLOZAPINE [Interacting]
     Active Substance: CLOZAPINE
     Dosage: 500 MILLIGRAM, BID
     Route: 048
  7. CLOZAPINE [Interacting]
     Active Substance: CLOZAPINE
     Dosage: 500 MILLIGRAM, BID
     Route: 061
  8. CLOZAPINE [Interacting]
     Active Substance: CLOZAPINE
     Dosage: 500 MILLIGRAM, BID
     Route: 061
  9. CLOZAPINE [Interacting]
     Active Substance: CLOZAPINE
     Dosage: 100 MILLIGRAM, Q8H
     Route: 065
     Dates: start: 20240120
  10. CLOZAPINE [Interacting]
     Active Substance: CLOZAPINE
     Dosage: 100 MILLIGRAM, Q8H
     Dates: start: 20240120
  11. CLOZAPINE [Interacting]
     Active Substance: CLOZAPINE
     Dosage: 100 MILLIGRAM, Q8H
     Dates: start: 20240120
  12. CLOZAPINE [Interacting]
     Active Substance: CLOZAPINE
     Dosage: 100 MILLIGRAM, Q8H
     Route: 065
     Dates: start: 20240120
  13. CLOZAPINE [Interacting]
     Active Substance: CLOZAPINE
     Dosage: UNK
     Route: 065
  14. CLOZAPINE [Interacting]
     Active Substance: CLOZAPINE
     Dosage: UNK
     Route: 065
  15. CLOZAPINE [Interacting]
     Active Substance: CLOZAPINE
     Dosage: UNK
  16. CLOZAPINE [Interacting]
     Active Substance: CLOZAPINE
     Dosage: UNK
  17. CLOZAPINE [Interacting]
     Active Substance: CLOZAPINE
     Dosage: UNK
     Route: 065
  18. CLOZAPINE [Interacting]
     Active Substance: CLOZAPINE
     Dosage: UNK
  19. CLOZAPINE [Interacting]
     Active Substance: CLOZAPINE
     Dosage: UNK
  20. CLOZAPINE [Interacting]
     Active Substance: CLOZAPINE
     Dosage: UNK
     Route: 065
  21. CLOZAPINE [Interacting]
     Active Substance: CLOZAPINE
     Dosage: UNK UNK, Q8H (50 (8H)
     Route: 048
     Dates: start: 20240123
  22. CLOZAPINE [Interacting]
     Active Substance: CLOZAPINE
     Dosage: UNK UNK, Q8H (50 (8H)
     Route: 048
     Dates: start: 20240123
  23. CLOZAPINE [Interacting]
     Active Substance: CLOZAPINE
     Dosage: UNK UNK, Q8H (50 (8H)
     Route: 061
     Dates: start: 20240123
  24. CLOZAPINE [Interacting]
     Active Substance: CLOZAPINE
     Dosage: UNK UNK, Q8H (50 (8H)
     Route: 061
     Dates: start: 20240123
  25. CLOZAPINE [Interacting]
     Active Substance: CLOZAPINE
     Dosage: UNK UNK, Q8H
     Route: 065
     Dates: start: 20240124
  26. CLOZAPINE [Interacting]
     Active Substance: CLOZAPINE
     Dosage: UNK UNK, Q8H
     Dates: start: 20240124
  27. CLOZAPINE [Interacting]
     Active Substance: CLOZAPINE
     Dosage: UNK UNK, Q8H
     Dates: start: 20240124
  28. CLOZAPINE [Interacting]
     Active Substance: CLOZAPINE
     Dosage: UNK UNK, Q8H
     Route: 065
     Dates: start: 20240124
  29. CLOZAPINE [Interacting]
     Active Substance: CLOZAPINE
     Dosage: 75 MILLIGRAM, Q8H
     Route: 061
     Dates: start: 20250125
  30. CLOZAPINE [Interacting]
     Active Substance: CLOZAPINE
     Dosage: 75 MILLIGRAM, Q8H
     Route: 061
     Dates: start: 20250125
  31. CLOZAPINE [Interacting]
     Active Substance: CLOZAPINE
     Dosage: 75 MILLIGRAM, Q8H
     Route: 048
     Dates: start: 20250125
  32. CLOZAPINE [Interacting]
     Active Substance: CLOZAPINE
     Dosage: 75 MILLIGRAM, Q8H
     Route: 048
     Dates: start: 20250125
  33. ATORVASTATIN [Suspect]
     Active Substance: ATORVASTATIN
     Indication: Product used for unknown indication
     Dosage: 10 MILLIGRAM, QD
  34. ATORVASTATIN [Suspect]
     Active Substance: ATORVASTATIN
     Dosage: 10 MILLIGRAM, QD
     Route: 065
  35. ATORVASTATIN [Suspect]
     Active Substance: ATORVASTATIN
     Dosage: 10 MILLIGRAM, QD
     Route: 065
  36. ATORVASTATIN [Suspect]
     Active Substance: ATORVASTATIN
     Dosage: 10 MILLIGRAM, QD
  37. AMLODIPINE [Suspect]
     Active Substance: AMLODIPINE BESYLATE
     Indication: Product used for unknown indication
     Dosage: 5 MILLIGRAM, QD
  38. AMLODIPINE [Suspect]
     Active Substance: AMLODIPINE BESYLATE
     Dosage: 5 MILLIGRAM, QD
     Route: 065
  39. AMLODIPINE [Suspect]
     Active Substance: AMLODIPINE BESYLATE
     Dosage: 5 MILLIGRAM, QD
     Route: 065
  40. AMLODIPINE [Suspect]
     Active Substance: AMLODIPINE BESYLATE
     Dosage: 5 MILLIGRAM, QD
  41. CIPROFLOXACIN [Interacting]
     Active Substance: CIPROFLOXACIN
     Indication: Upper respiratory tract infection
     Dosage: 500 MILLIGRAM, BID
     Route: 061
  42. CIPROFLOXACIN [Interacting]
     Active Substance: CIPROFLOXACIN
     Dosage: 500 MILLIGRAM, BID
     Route: 048
  43. CIPROFLOXACIN [Interacting]
     Active Substance: CIPROFLOXACIN
     Dosage: 500 MILLIGRAM, BID
     Route: 048
  44. CIPROFLOXACIN [Interacting]
     Active Substance: CIPROFLOXACIN
     Dosage: 500 MILLIGRAM, BID
     Route: 061
  45. SPIRONOLACTONE [Suspect]
     Active Substance: SPIRONOLACTONE
     Indication: Product used for unknown indication
     Dosage: 25 MILLIGRAM, QD
  46. SPIRONOLACTONE [Suspect]
     Active Substance: SPIRONOLACTONE
     Dosage: 25 MILLIGRAM, QD
     Route: 065
  47. SPIRONOLACTONE [Suspect]
     Active Substance: SPIRONOLACTONE
     Dosage: 25 MILLIGRAM, QD
     Route: 065
  48. SPIRONOLACTONE [Suspect]
     Active Substance: SPIRONOLACTONE
     Dosage: 25 MILLIGRAM, QD
  49. FLUPENTIXOL [Suspect]
     Active Substance: FLUPENTIXOL
     Indication: Product used for unknown indication
     Dosage: 40 MILLIGRAM, Q2W
     Route: 065
  50. FLUPENTIXOL [Suspect]
     Active Substance: FLUPENTIXOL
     Dosage: 40 MILLIGRAM, Q2W
  51. FLUPENTIXOL [Suspect]
     Active Substance: FLUPENTIXOL
     Dosage: 40 MILLIGRAM, Q2W
  52. FLUPENTIXOL [Suspect]
     Active Substance: FLUPENTIXOL
     Dosage: 40 MILLIGRAM, Q2W
     Route: 065
  53. FLUPENTIXOL [Suspect]
     Active Substance: FLUPENTIXOL
     Dosage: UNK
     Route: 065
  54. FLUPENTIXOL [Suspect]
     Active Substance: FLUPENTIXOL
     Dosage: UNK
  55. FLUPENTIXOL [Suspect]
     Active Substance: FLUPENTIXOL
     Dosage: UNK
  56. FLUPENTIXOL [Suspect]
     Active Substance: FLUPENTIXOL
     Dosage: UNK
     Route: 065
  57. CLONAZEPAM [Suspect]
     Active Substance: CLONAZEPAM
     Indication: Product used for unknown indication
     Dosage: 0.5 MILLIGRAM
  58. CLONAZEPAM [Suspect]
     Active Substance: CLONAZEPAM
     Dosage: 0.5 MILLIGRAM
     Route: 065
  59. CLONAZEPAM [Suspect]
     Active Substance: CLONAZEPAM
     Dosage: 0.5 MILLIGRAM
     Route: 065
  60. CLONAZEPAM [Suspect]
     Active Substance: CLONAZEPAM
     Dosage: 0.5 MILLIGRAM
  61. AMITRIPTYLINE [Suspect]
     Active Substance: AMITRIPTYLINE
     Indication: Salivary hypersecretion
     Dosage: 25 MILLIGRAM, QD
  62. AMITRIPTYLINE [Suspect]
     Active Substance: AMITRIPTYLINE
     Dosage: 25 MILLIGRAM, QD
     Route: 065
  63. AMITRIPTYLINE [Suspect]
     Active Substance: AMITRIPTYLINE
     Dosage: 25 MILLIGRAM, QD
     Route: 065
  64. AMITRIPTYLINE [Suspect]
     Active Substance: AMITRIPTYLINE
     Dosage: 25 MILLIGRAM, QD

REACTIONS (5)
  - Schizophrenia [Recovering/Resolving]
  - Upper respiratory tract infection [Unknown]
  - Antipsychotic drug level increased [Recovered/Resolved]
  - Drug interaction [Recovered/Resolved]
  - Sedation [Unknown]
